FAERS Safety Report 6865052-8 (Version None)
Quarter: 2010Q3

REPORT INFORMATION
  Report Type: 
  Country: None (occurrence: None)
  Receive Date: 20100721
  Receipt Date: 20080411
  Transmission Date: 20110219
  Serious: No
  Sender: FDA-Public Use
  Company Number: US-PFIZER INC-2008032752

PATIENT
  Sex: Female
  Weight: 75 kg

DRUGS (1)
  1. CHANTIX [Suspect]
     Indication: SMOKING CESSATION THERAPY
     Dates: start: 20080101, end: 20080201

REACTIONS (5)
  - CIRCADIAN RHYTHM SLEEP DISORDER [None]
  - DIZZINESS [None]
  - HYPOTENSION [None]
  - MALAISE [None]
  - NAUSEA [None]
